FAERS Safety Report 20504617 (Version 1)
Quarter: 2022Q1

REPORT INFORMATION
  Report Type: Spontaneous
  Country: JP (occurrence: JP)
  Receive Date: 20220223
  Receipt Date: 20220223
  Transmission Date: 20220423
  Serious: Yes (Hospitalization)
  Sender: FDA-Public Use
  Company Number: JP-NOVOPROD-892832

PATIENT
  Sex: Female

DRUGS (1)
  1. NOVORAPID [Suspect]
     Active Substance: INSULIN ASPART
     Indication: Type 1 diabetes mellitus
     Dosage: 4 TO 5 UNITS AT A TIME
     Route: 058

REACTIONS (1)
  - Hospitalisation [Unknown]

NARRATIVE: CASE EVENT DATE: 20211201
